FAERS Safety Report 10111172 (Version 4)
Quarter: 2015Q2

REPORT INFORMATION
  Report Type: Spontaneous
  Country: US (occurrence: None)
  Receive Date: 20140421
  Receipt Date: 20150420
  Transmission Date: 20150821
  Serious: Yes (Other)
  Sender: FDA-Public Use
  Company Number: AEGR000262

PATIENT
  Age: 69 Year
  Sex: Female
  Weight: 63.5 kg

DRUGS (23)
  1. JUXTAPID [Suspect]
     Active Substance: LOMITAPIDE MESYLATE
     Indication: TYPE IIA HYPERLIPIDAEMIA
     Route: 048
     Dates: start: 20131216, end: 20140302
  2. COLON CLEANSER NATURAL DETOX FORMULAT (ALOE VERA, CITRUS SPP. PEEL, GENTIANA LUTEA ROOT, HYDRASTIS CANADENSIS ROOT, LACTOBACILLUS ACIDOPHILUS, PANTAGO ASIATICA SEED HUSK, RHAMNUS FRANGULA BARK, RHAMNUS PURSHIANA BARK, TRITICUM AESTIVUM) [Concomitant]
  3. DULCOLAX (BISACODYL) [Concomitant]
     Active Substance: BISACODYL
  4. NASALCOROM (CROMOGLICATE SODIUM) [Concomitant]
  5. FAMOTIDINE. [Concomitant]
     Active Substance: FAMOTIDINE
  6. SIMILASAN (HERBAL EXTRACT NOS, HOMEOPATICS NOS) [Concomitant]
  7. CLARTIN (LORATADINE) [Concomitant]
  8. OMEPRAZOLE. [Concomitant]
     Active Substance: OMEPRAZOLE
  9. AMLODIPINE (AMLODIPINE BESILATE) [Concomitant]
  10. VITAMIN D (COLECALCIFEOL) [Concomitant]
  11. JUXTAPID [Suspect]
     Active Substance: LOMITAPIDE MESYLATE
     Indication: CORONARY ARTERY DISEASE
     Route: 048
     Dates: start: 20131216, end: 20140302
  12. FLEXERIL [Concomitant]
     Active Substance: CYCLOBENZAPRINE HYDROCHLORIDE
  13. VICODIN [Concomitant]
     Active Substance: ACETAMINOPHEN\HYDROCODONE BITARTRATE
  14. LINZESS [Concomitant]
     Active Substance: LINACLOTIDE
  15. VITAMIN B12 (COBAMAMIDE) [Concomitant]
  16. FIORICET WITH CODEINE (BUTALBITAL, CAFFEINE, CODEINE PHOSPHATE, PARACETAMOL) [Concomitant]
  17. VITAMIN D3 (COLECALIFEROL) [Concomitant]
  18. JUXTAPID [Suspect]
     Active Substance: LOMITAPIDE MESYLATE
     Indication: HYPERCHOLESTEROLAEMIA
     Route: 048
     Dates: start: 20131216, end: 20140302
  19. ZANTAC [Concomitant]
     Active Substance: RANITIDINE HYDROCHLORIDE
  20. VITAMIN E (TOCOPHERYL ACID SUCCINATE) [Concomitant]
  21. LIDODERM [Concomitant]
     Active Substance: LIDOCAINE
  22. LORATADINE. [Concomitant]
     Active Substance: LORATADINE
  23. COLACE [Concomitant]
     Active Substance: DOCUSATE SODIUM

REACTIONS (13)
  - Gastrointestinal pain [None]
  - Hypokinesia [None]
  - Back pain [None]
  - Therapy cessation [None]
  - Hepatic enzyme increased [None]
  - Aspartate aminotransferase increased [None]
  - Swollen tongue [None]
  - Musculoskeletal stiffness [None]
  - Drug effect incomplete [None]
  - Weight decreased [None]
  - Fibromyalgia [None]
  - Off label use [None]
  - Alanine aminotransferase increased [None]

NARRATIVE: CASE EVENT DATE: 201401
